FAERS Safety Report 5778006-X (Version None)
Quarter: 2008Q2

REPORT INFORMATION
  Report Type: 
  Country: None (occurrence: None)
  Receive Date: 20080617
  Receipt Date: 20080602
  Transmission Date: 20081010
  Serious: Yes (Hospitalization)
  Sender: FDA-Public Use
  Company Number: PAR_02214_2008

PATIENT
  Sex: Male
  Weight: 84 kg

DRUGS (5)
  1. QUETIAPINE FUMARATE [Suspect]
     Indication: SCHIZOPHRENIA
     Dosage: 400 MG 1X ORAL
     Route: 048
     Dates: start: 20080416, end: 20080416
  2. SEROQUEL XR [Suspect]
     Indication: SCHIZOPHRENIA
     Dosage: 400 MG 1X ORAL
     Route: 048
     Dates: start: 20080412, end: 20080412
  3. ATIVAN [Concomitant]
  4. AMBIEN [Concomitant]
  5. TYLENOL [Concomitant]

REACTIONS (3)
  - HALLUCINATION, AUDITORY [None]
  - PARANOIA [None]
  - PSYCHOTIC DISORDER [None]
